FAERS Safety Report 21111055 (Version 1)
Quarter: 2022Q3

REPORT INFORMATION
  Report Type: Spontaneous
  Country: US (occurrence: None)
  Receive Date: 20220720
  Receipt Date: 20220720
  Transmission Date: 20221026
  Serious: Yes (Hospitalization)
  Sender: FDA-Public Use
  Company Number: None

PATIENT
  Age: 24 Year
  Sex: Female
  Weight: 143.3 kg

DRUGS (12)
  1. TRUXIMA [Suspect]
     Active Substance: RITUXIMAB-ABBS
     Indication: Haematuria
     Dosage: FREQUENCY : WEEKLY;?
     Route: 042
     Dates: start: 20220718, end: 20220718
  2. PREDNISONE [Concomitant]
     Active Substance: PREDNISONE
     Dates: start: 20220719
  3. DIPHENHYDRAMINE [Concomitant]
     Active Substance: DIPHENHYDRAMINE
     Dates: start: 20220719
  4. FUROSEMIDE [Concomitant]
     Active Substance: FUROSEMIDE
     Dates: start: 20220715
  5. LOSARTAN [Concomitant]
     Active Substance: LOSARTAN
     Dates: start: 20220714
  6. ALBUTEROL [Concomitant]
     Active Substance: ALBUTEROL
     Dates: start: 20220713
  7. VITAMIN D [Concomitant]
     Active Substance: VITAMIN D NOS
     Dates: start: 20220324
  8. NYSTATIN [Concomitant]
     Active Substance: NYSTATIN
     Dates: start: 20220316
  9. TRIAMCINOLONE ACETONIDE [Concomitant]
     Active Substance: TRIAMCINOLONE ACETONIDE
     Dates: start: 20220316
  10. ARIPIPRAZOLE [Concomitant]
     Active Substance: ARIPIPRAZOLE
     Dates: start: 20220217
  11. LEVOTHYROXINE [Concomitant]
     Active Substance: LEVOTHYROXINE
     Dates: start: 20220131
  12. acetaminophe [Concomitant]
     Dates: start: 20180410

REACTIONS (12)
  - Rash [None]
  - Vomiting [None]
  - Arthralgia [None]
  - Contusion [None]
  - Swelling [None]
  - Dry throat [None]
  - Dyspnoea [None]
  - Dysphagia [None]
  - Bone pain [None]
  - Tachycardia [None]
  - Fibrin D dimer increased [None]
  - Myalgia [None]

NARRATIVE: CASE EVENT DATE: 20220720
